FAERS Safety Report 5081908-3 (Version None)
Quarter: 2006Q3

REPORT INFORMATION
  Report Type: 
  Country: None (occurrence: None)
  Receive Date: 20060816
  Receipt Date: 20060808
  Transmission Date: 20061208
  Serious: Yes (Hospitalization)
  Sender: FDA-Public Use
  Company Number: 2006AP03664

PATIENT
  Age: 29 Year

DRUGS (2)
  1. SEROQUEL [Suspect]
     Indication: SCHIZOPHRENIA
     Route: 048
     Dates: start: 20060718, end: 20060720
  2. RISPERDAL [Suspect]
     Route: 048
     Dates: end: 20060717

REACTIONS (1)
  - DRUG WITHDRAWAL SYNDROME [None]
